FAERS Safety Report 7517095-9 (Version None)
Quarter: 2011Q2

REPORT INFORMATION
  Report Type: 
  Country: None (occurrence: None)
  Receive Date: 20110601
  Receipt Date: 20110520
  Transmission Date: 20111010
  Serious: Yes (Other)
  Sender: FDA-Public Use
  Company Number: US-UCBSA-033711

PATIENT
  Sex: Male

DRUGS (2)
  1. CIMZIA [Suspect]
     Route: 058
     Dates: start: 20110101
  2. CIMZIA [Suspect]
     Route: 058
     Dates: start: 20110327, end: 20110101

REACTIONS (3)
  - JOINT SWELLING [None]
  - FUNGAL INFECTION [None]
  - NASOPHARYNGITIS [None]
